FAERS Safety Report 10056469 (Version 1)
Quarter: 2014Q2

REPORT INFORMATION
  Report Type: Spontaneous
  Country: HU (occurrence: HU)
  Receive Date: 20140403
  Receipt Date: 20140403
  Transmission Date: 20141212
  Serious: Yes (Other)
  Sender: FDA-Public Use
  Company Number: HU-TAKEDA-2014TUS002522

PATIENT
  Sex: 0

DRUGS (4)
  1. ADENURIC [Suspect]
     Indication: GOUTY ARTHRITIS
     Dosage: 80 MG, QD
     Route: 048
     Dates: start: 20140116, end: 20140119
  2. MELOXAN [Concomitant]
     Indication: RHEUMATOID ARTHRITIS
     Dosage: 15 MG, QD
  3. MEDROL                             /00049601/ [Concomitant]
     Indication: RHEUMATOID ARTHRITIS
     Dosage: UNK
  4. RANITIDINE [Concomitant]
     Dosage: UNK

REACTIONS (1)
  - Anaphylactic reaction [Recovered/Resolved]
